FAERS Safety Report 25796808 (Version 2)
Quarter: 2025Q3

REPORT INFORMATION
  Report Type: Spontaneous
  Country: CN (occurrence: CN)
  Receive Date: 20250912
  Receipt Date: 20250918
  Transmission Date: 20251021
  Serious: Yes (Hospitalization)
  Sender: BOEHRINGER INGELHEIM
  Company Number: CN-BoehringerIngelheim-2025-BI-093896

PATIENT
  Age: 58 Year
  Sex: Female

DRUGS (7)
  1. TELMISARTAN [Suspect]
     Active Substance: TELMISARTAN
     Indication: Hypertension
  2. ATORVASTATIN [Suspect]
     Active Substance: ATORVASTATIN
     Indication: Hyperlipidaemia
  3. ACIPIMOX [Suspect]
     Active Substance: ACIPIMOX
     Indication: Lipid management
     Dosage: 1 CAPSULE
  4. BICYCLOL [Concomitant]
     Active Substance: BICYCLOL
  5. ursodeoxycholic acid capsules [Concomitant]
  6. INSULIN GLARGINE [Concomitant]
     Active Substance: INSULIN GLARGINE
     Indication: Diabetes mellitus management
  7. INSULIN ASPART [Concomitant]
     Active Substance: INSULIN ASPART
     Indication: Diabetes mellitus management

REACTIONS (2)
  - Drug-induced liver injury [Recovered/Resolved]
  - Hepatic cyst [Unknown]
